FAERS Safety Report 9267576 (Version 1)
Quarter: 2013Q2

REPORT INFORMATION
  Report Type: Spontaneous
  Country: US (occurrence: US)
  Receive Date: 20130502
  Receipt Date: 20130502
  Transmission Date: 20140414
  Serious: No
  Sender: FDA-Public Use
  Company Number: US-BAYER-2013-053669

PATIENT
  Age: 60 Year
  Sex: Male

DRUGS (1)
  1. CIPRO [Suspect]
     Indication: PROSTATITIS
     Dosage: 500 MG, UNK

REACTIONS (5)
  - Pain in extremity [None]
  - Tendon disorder [None]
  - Musculoskeletal discomfort [None]
  - Sensation of heaviness [None]
  - Neuropathy peripheral [None]
